FAERS Safety Report 4680375-9 (Version None)
Quarter: 2005Q2

REPORT INFORMATION
  Report Type: 
  Country: None (occurrence: None)
  Receive Date: 20050601
  Receipt Date: 20050524
  Transmission Date: 20051028
  Serious: Yes (Death)
  Sender: FDA-Public Use
  Company Number: OMPQ-NO-0505S-0737

PATIENT
  Age: 54 Year
  Sex: Female

DRUGS (10)
  1. OMNIPAQUE 140 [Suspect]
     Indication: DISSEMINATED TUBERCULOSIS
     Dosage: 140 ML, SINGLE DOSE
     Dates: start: 20041119, end: 20041119
  2. ISONIAZID (TIBINIDE) [Concomitant]
  3. RIFAMPICIN (RIMACTAN) [Concomitant]
  4. PYRAZINAMIDE [Concomitant]
  5. PARACETAMOL (PANODIL) [Concomitant]
  6. DEXAMETHASONE (ISOPTO-MAXIDEX) [Concomitant]
  7. ATROPINE SULFATE (ISOPTO-ATROPIN) [Concomitant]
  8. PYRIDOXINE HYDROCHLORIDE (PYRIDOXIN RECIP) [Concomitant]
  9. CYCLO-PROGYNOVA (CYCLABIL) [Concomitant]
  10. NEXIUM [Concomitant]

REACTIONS (11)
  - BACK PAIN [None]
  - C-REACTIVE PROTEIN INCREASED [None]
  - DIALYSIS [None]
  - GALLBLADDER DISORDER [None]
  - GENERAL PHYSICAL HEALTH DETERIORATION [None]
  - HEPATIC CIRRHOSIS [None]
  - HEPATIC FAILURE [None]
  - POST PROCEDURAL COMPLICATION [None]
  - PYREXIA [None]
  - THERAPY NON-RESPONDER [None]
  - URTICARIA GENERALISED [None]
